FAERS Safety Report 7686252-3 (Version None)
Quarter: 2011Q3

REPORT INFORMATION
  Report Type: 
  Country: None (occurrence: None)
  Receive Date: 20110816
  Receipt Date: 20100804
  Transmission Date: 20111222
  Serious: No
  Sender: FDA-Public Use
  Company Number: US-GLAXOSMITHKLINE-A0873965A

PATIENT
  Age: 60 Year
  Sex: Female

DRUGS (1)
  1. TAGAMET HB 200 [Suspect]
     Indication: DYSPEPSIA

REACTIONS (1)
  - CONSTIPATION [None]
